FAERS Safety Report 23403358 (Version 3)
Quarter: 2024Q2

REPORT INFORMATION
  Report Type: Report from Study
  Country: DE (occurrence: DE)
  Receive Date: 20240116
  Receipt Date: 20240610
  Transmission Date: 20240715
  Serious: Yes (Hospitalization, Other)
  Sender: FDA-Public Use
  Company Number: DE-UCBSA-2024002097

PATIENT
  Age: 59 Year
  Sex: Male

DRUGS (2)
  1. BIMEKIZUMAB [Suspect]
     Active Substance: BIMEKIZUMAB
     Indication: Psoriasis
     Dosage: 320 MILLIGRAM, EV 4 WEEKS
     Route: 058
     Dates: start: 20231123
  2. BIMEKIZUMAB [Suspect]
     Active Substance: BIMEKIZUMAB
     Dosage: 320 MILLIGRAM, EV 8 WEEKS
     Route: 058

REACTIONS (1)
  - Erysipelas [Recovered/Resolved]

NARRATIVE: CASE EVENT DATE: 20240106
